FAERS Safety Report 16763203 (Version 2)
Quarter: 2019Q4

REPORT INFORMATION
  Report Type: Spontaneous
  Country: BR (occurrence: BR)
  Receive Date: 20190902
  Receipt Date: 20191107
  Transmission Date: 20200122
  Serious: Yes (Other)
  Sender: FDA-Public Use
  Company Number: BR-AMGEN-BRASP2015035441

PATIENT
  Age: 46 Year
  Sex: Female
  Weight: 58 kg

DRUGS (5)
  1. PREDNISONE. [Suspect]
     Active Substance: PREDNISONE
     Indication: RHEUMATOID ARTHRITIS
     Dosage: 5 MILLIGRAM
     Route: 065
     Dates: start: 201504
  2. PRELONE [Concomitant]
     Active Substance: PREDNISOLONE
     Indication: RHEUMATOID ARTHRITIS
     Dosage: 10 MILLIGRAM, QD
     Dates: start: 201503
  3. ENBREL [Suspect]
     Active Substance: ETANERCEPT
     Indication: RHEUMATOID ARTHRITIS
     Dosage: 50 MILLIGRAM, QWK
     Route: 058
     Dates: start: 201503, end: 201505
  4. ENBREL [Suspect]
     Active Substance: ETANERCEPT
     Dosage: UNK
     Route: 065
  5. GARDENAL [PHENOBARBITAL] [Concomitant]
     Active Substance: PHENOBARBITAL
     Indication: EPILEPSY
     Dosage: 200 MILLIGRAM, QD
     Dates: start: 1982

REACTIONS (17)
  - Nausea [Recovered/Resolved]
  - Injection site swelling [Recovered/Resolved]
  - Influenza [Recovered/Resolved]
  - Ear pain [Recovered/Resolved]
  - Headache [Recovered/Resolved]
  - Injection site pruritus [Recovered/Resolved]
  - Injection site discolouration [Recovered/Resolved]
  - Swelling [Unknown]
  - Dizziness [Recovered/Resolved]
  - Nasopharyngitis [Unknown]
  - Tumour exudation [Unknown]
  - Neoplasm [Unknown]
  - Viral infection [Recovered/Resolved]
  - Ear disorder [Recovered/Resolved]
  - Tumour rupture [Unknown]
  - Hand deformity [Unknown]
  - Injection site erythema [Recovered/Resolved]

NARRATIVE: CASE EVENT DATE: 2015
